FAERS Safety Report 10601309 (Version 1)
Quarter: 2014Q4

REPORT INFORMATION
  Report Type: Spontaneous
  Country: JP (occurrence: JP)
  Receive Date: 20141124
  Receipt Date: 20141124
  Transmission Date: 20150529
  Serious: Yes (Hospitalization)
  Sender: FDA-Public Use
  Company Number: JP-MYLANLABS-2014M1011512

PATIENT

DRUGS (5)
  1. NITRAZEPAM [Interacting]
     Active Substance: NITRAZEPAM
     Dosage: 22 NITRAZEPAM 5MG TABLETS
     Route: 048
  2. ASPIRIN ALUMINIUM [Interacting]
     Active Substance: ASPIRIN ALUMINUM
     Dosage: 84 TABLETS CONTAINING 330MG ASPIRIN PER TABLET; TOTAL 27 720MG
     Route: 048
  3. IMIPRAMINE [Suspect]
     Active Substance: IMIPRAMINE
     Dosage: 40 IMIPRAMINE 25MG TABLETS
     Route: 048
  4. TRIAZOLAM. [Interacting]
     Active Substance: TRIAZOLAM
     Dosage: 54 TRIAZOLAM 0.25MG TABLETS
     Route: 048
  5. ETIZOLAM [Interacting]
     Active Substance: ETIZOLAM
     Dosage: 68 ETIZOLAM 1MG TABLETS
     Route: 048

REACTIONS (5)
  - Toxicity to various agents [Unknown]
  - Drug half-life increased [Unknown]
  - Overdose [Unknown]
  - Altered state of consciousness [Unknown]
  - Drug interaction [Unknown]
